FAERS Safety Report 4902220-6 (Version None)
Quarter: 2006Q1

REPORT INFORMATION
  Report Type: 
  Country: None (occurrence: None)
  Receive Date: 20060202
  Receipt Date: 20060124
  Transmission Date: 20060701
  Serious: Yes (Death, Other)
  Sender: FDA-Public Use
  Company Number: 163-20785-06010202

PATIENT
  Age: 45 Year
  Sex: Male

DRUGS (11)
  1. THALOMID [Suspect]
     Indication: MALIGNANT MELANOMA
     Dosage: 100 MG, QHS, ORAL
     Route: 048
     Dates: start: 20050713, end: 20050912
  2. THALOMID [Suspect]
     Indication: METASTASES TO BONE
     Dosage: 100 MG, QHS, ORAL
     Route: 048
     Dates: start: 20050713, end: 20050912
  3. THALOMID [Suspect]
     Indication: METASTASES TO CENTRAL NERVOUS SYSTEM
     Dosage: 100 MG, QHS, ORAL
     Route: 048
     Dates: start: 20050713, end: 20050912
  4. DEXAMETHASONE [Concomitant]
  5. PROTONIX [Concomitant]
  6. CELEXA [Concomitant]
  7. OXYCONTIN [Concomitant]
  8. LORAZEPAM [Concomitant]
  9. MORPHINE SULFATE [Concomitant]
  10. MYCELEX [Concomitant]
  11. TEMODAR [Concomitant]

REACTIONS (3)
  - DISEASE PROGRESSION [None]
  - HODGKIN'S DISEASE [None]
  - MALIGNANT MELANOMA [None]
